FAERS Safety Report 9695868 (Version 4)
Quarter: 2014Q1

REPORT INFORMATION
  Report Type: Spontaneous
  Country: US (occurrence: None)
  Receive Date: 20131115
  Receipt Date: 20140127
  Transmission Date: 20141002
  Serious: Yes (Other)
  Sender: FDA-Public Use
  Company Number: 2013US002809

PATIENT
  Age: 69 Year
  Sex: Female
  Weight: 77 kg

DRUGS (1)
  1. ICLUSIG [Suspect]
     Indication: LEUKAEMIA
     Dosage: 45 MG, QD, ORAL
     Route: 048
     Dates: start: 20130924, end: 20131023

REACTIONS (6)
  - Skin reaction [None]
  - Skin fissures [None]
  - Skin tightness [None]
  - Skin exfoliation [None]
  - Pain [None]
  - Dry skin [None]
